FAERS Safety Report 4831859-1 (Version None)
Quarter: 2005Q4

REPORT INFORMATION
  Report Type: 
  Country: None (occurrence: None)
  Receive Date: 20051116
  Receipt Date: 20051104
  Transmission Date: 20060501
  Serious: Yes (Hospitalization)
  Sender: FDA-Public Use
  Company Number: 2005RR-01076

PATIENT
  Age: 22 Year
  Sex: Male

DRUGS (3)
  1. PARACETAMOL (PARACETAMOL) [Suspect]
     Dosage: 25 G ORAL
     Route: 048
  2. PHENYTOIN [Suspect]
     Indication: CONVULSION
  3. IBUPROFEN [Suspect]
     Dosage: 400 MG, 25 TIMES, ORAL
     Route: 048

REACTIONS (11)
  - ANTICONVULSANT DRUG LEVEL INCREASED [None]
  - DRUG INTERACTION [None]
  - DRUG TOXICITY [None]
  - HAEMODIALYSIS [None]
  - HEPATIC ENCEPHALOPATHY [None]
  - HEPATIC FAILURE [None]
  - HEPATIC NECROSIS [None]
  - HEPATOTOXICITY [None]
  - INTENTIONAL OVERDOSE [None]
  - LIVER TRANSPLANT [None]
  - RENAL FAILURE ACUTE [None]
